FAERS Safety Report 8227244-5 (Version None)
Quarter: 2012Q1

REPORT INFORMATION
  Report Type: 
  Country: None (occurrence: None)
  Receive Date: 20120322
  Receipt Date: 20120306
  Transmission Date: 20120608
  Serious: No
  Sender: FDA-Public Use
  Company Number: US-B.I. PHARMACEUTICALS,INC./RIDGEFIELD-2011-BP-15281BP

PATIENT
  Sex: Female

DRUGS (11)
  1. AMLODIPINE [Concomitant]
  2. VITAMIN B COMPLEX CAP [Concomitant]
  3. VITAMIN-MINERAL COMPOUND TAB [Concomitant]
     Indication: SUPPLEMENTATION THERAPY
  4. LUTEIN [Concomitant]
     Indication: SUPPLEMENTATION THERAPY
  5. PRADAXA [Suspect]
     Dosage: 150 MG
     Route: 048
     Dates: start: 20110329, end: 20110901
  6. TOPROL-XL [Concomitant]
     Indication: HYPERTENSION
     Route: 048
  7. CITRACAL WITH D [Concomitant]
     Indication: OSTEOPOROSIS
  8. LISINOPRIL [Concomitant]
     Indication: HYPERTENSION
     Route: 048
  9. PRADAXA [Suspect]
     Indication: ATRIAL FIBRILLATION
     Dosage: 300 MG
     Route: 048
     Dates: start: 20101201
  10. PRADAXA [Suspect]
     Dosage: 150 MG
     Route: 048
     Dates: start: 20111025
  11. FISH OIL CAPSULE [Suspect]
     Indication: ANTICOAGULANT THERAPY

REACTIONS (4)
  - HYPERTENSION [None]
  - FATIGUE [None]
  - HYPOTENSION [None]
  - CONTUSION [None]
